FAERS Safety Report 7131080-0 (Version None)
Quarter: 2010Q4

REPORT INFORMATION
  Report Type: 
  Country: None (occurrence: None)
  Receive Date: 20101124
  Receipt Date: 20101124
  Transmission Date: 20110411
  Serious: Yes (Other)
  Sender: FDA-Public Use
  Company Number: None

PATIENT
  Sex: Male
  Weight: 29.2 kg

DRUGS (3)
  1. ADVATE [Suspect]
     Indication: FACTOR VIII DEFICIENCY
     Dosage: 1544 UNITS EVERY OTHER DAY IV
     Route: 042
     Dates: start: 20101111, end: 20101111
  2. ADVATE [Suspect]
  3. TYLENOL W/ CODEINE [Concomitant]

REACTIONS (2)
  - CHEST PAIN [None]
  - CYANOSIS [None]
